FAERS Safety Report 24309066 (Version 2)
Quarter: 2024Q3

REPORT INFORMATION
  Report Type: Spontaneous
  Country: NL (occurrence: NL)
  Receive Date: 20240911
  Receipt Date: 20240919
  Transmission Date: 20241017
  Serious: Yes (Life-Threatening)
  Sender: TEVA
  Company Number: None

PATIENT
  Age: 74 Year
  Sex: Male
  Weight: 79.5 kg

DRUGS (1)
  1. DUTASTERIDE\TAMSULOSIN [Suspect]
     Active Substance: DUTASTERIDE\TAMSULOSIN
     Indication: Prostatomegaly
     Dosage: 1 PIECE ONCE PER DAY; 0.5/0.4MG / BRAND NAME NOT SPECIFIED
     Route: 065
     Dates: start: 20240729, end: 20240818

REACTIONS (3)
  - Fatigue [Recovering/Resolving]
  - Thrombosis [Recovering/Resolving]
  - Asthenia [Recovering/Resolving]
